FAERS Safety Report 12067247 (Version 1)
Quarter: 2016Q1

REPORT INFORMATION
  Report Type: Spontaneous
  Country: US (occurrence: US)
  Receive Date: 20160210
  Receipt Date: 20160210
  Transmission Date: 20160526
  Serious: No
  Sender: FDA-Public Use
  Company Number: US-JNJFOC-20160117287

PATIENT
  Sex: Male
  Weight: 15.42 kg

DRUGS (2)
  1. MOTRIN CHILDREN [Suspect]
     Active Substance: IBUPROFEN
     Route: 048
  2. MOTRIN CHILDREN [Suspect]
     Active Substance: IBUPROFEN
     Indication: ACCIDENTAL EXPOSURE TO PRODUCT
     Route: 048
     Dates: start: 20160120

REACTIONS (1)
  - Accidental exposure to product [Unknown]

NARRATIVE: CASE EVENT DATE: 20160120
